FAERS Safety Report 9840509 (Version 1)
Quarter: 2013Q4

REPORT INFORMATION
  Report Type: Spontaneous
  Country: US (occurrence: None)
  Receive Date: 20131223
  Receipt Date: 20131223
  Transmission Date: 20140711
  Serious: Yes (Other)
  Sender: FDA-Public Use
  Company Number: 217785LEO

PATIENT
  Age: 52 Year
  Sex: Female
  Weight: 95 kg

DRUGS (1)
  1. PICATO [Suspect]
     Indication: THERAPEUTIC SKIN CARE TOPICAL
     Dosage: (1 IN 1 D), TOPICAL
     Route: 061
     Dates: start: 20120516, end: 20120519

REACTIONS (3)
  - Application site erythema [None]
  - Application site pain [None]
  - Application site pruritus [None]
